FAERS Safety Report 9871810 (Version 2)
Quarter: 2014Q1

REPORT INFORMATION
  Report Type: Report from Study
  Country: PL (occurrence: PL)
  Receive Date: 20140205
  Receipt Date: 20140205
  Transmission Date: 20141002
  Serious: Yes (Other)
  Sender: FDA-Public Use
  Company Number: PL-TAKEDA-TPA2013A04230

PATIENT
  Sex: 0

DRUGS (30)
  1. FEBUXOSTAT [Suspect]
     Indication: TUMOUR LYSIS SYNDROME
     Dosage: 120 MG, QD
     Route: 048
     Dates: start: 20130514, end: 20130520
  2. ACICLOVIR [Concomitant]
     Indication: HERPES VIRUS INFECTION
     Dosage: UNK
     Route: 042
     Dates: start: 20130513, end: 20130517
  3. ACICLOVIR [Concomitant]
     Dosage: 250 MG, BID
     Route: 042
     Dates: start: 20130518, end: 20130522
  4. EUTIROX [Concomitant]
     Indication: HYPOTHYROIDISM
     Dosage: 50 ?G, QD
     Route: 048
     Dates: start: 20060101
  5. ASAMAX [Concomitant]
     Indication: COLITIS
     Dosage: 500 MG, BID
     Route: 048
     Dates: start: 20130405, end: 20130516
  6. SULPERAZON [Concomitant]
     Indication: INFECTION PROPHYLAXIS
     Dosage: 2 G, BID
     Route: 042
     Dates: start: 20130514, end: 20130516
  7. SULPERAZON [Concomitant]
     Dosage: 2 G, BID
     Route: 042
     Dates: start: 20130528
  8. BIODACYNA [Concomitant]
     Indication: INFECTION PROPHYLAXIS
     Dosage: 1 G, QD
     Route: 042
     Dates: start: 20130514, end: 20130518
  9. ATOSSA [Concomitant]
     Indication: PROPHYLAXIS
     Dosage: 8 MG, BID
     Route: 042
     Dates: start: 20130516, end: 20130520
  10. DAUNORUBICIN [Concomitant]
     Indication: CHEMOTHERAPY
     Dosage: UNK
     Dates: start: 20130516, end: 20130522
  11. CYTARABINUM [Concomitant]
     Indication: CHEMOTHERAPY
     Dates: start: 20130516, end: 20130522
  12. CLADRIBINE [Concomitant]
     Indication: CHEMOTHERAPY
     Dates: start: 20130516, end: 20130522
  13. DIFLUCAN [Concomitant]
     Indication: INFECTION PROPHYLAXIS
     Dosage: 200 MG, QD
     Route: 042
     Dates: start: 20130513
  14. TAZOCIN [Concomitant]
     Indication: INFECTION PROPHYLAXIS
     Dosage: 4.5 G, TID
     Route: 042
     Dates: start: 20130517, end: 20130518
  15. CONTROLOC [Concomitant]
     Indication: PROPHYLAXIS AGAINST GASTROINTESTINAL ULCER
     Dosage: 40 MG, BID
     Route: 042
     Dates: start: 20130517, end: 20130518
  16. CONTROLOC [Concomitant]
     Dosage: 40 MG, QD
     Route: 042
     Dates: start: 20130518, end: 20130528
  17. POLPRAZOL [Concomitant]
     Indication: PROPHYLAXIS AGAINST GASTROINTESTINAL ULCER
     Dosage: 20 MG, QD
     Route: 048
     Dates: start: 20130516, end: 20130516
  18. POLPRAZOL [Concomitant]
     Dosage: 20 MG, QD
     Route: 048
     Dates: start: 20130528
  19. PARACETAMOL [Concomitant]
     Indication: HEADACHE
     Dosage: 500 MG, PRN
     Route: 048
     Dates: start: 20130511, end: 20130513
  20. RED BLOOD CELLS CONCENTRATED [Concomitant]
     Indication: ANAEMIA
     Dosage: 280 ML, QD
     Route: 041
     Dates: start: 20130513, end: 20130514
  21. RED BLOOD CELLS CONCENTRATED [Concomitant]
     Dosage: 280 ML, QD
     Route: 041
     Dates: start: 20130517, end: 20130518
  22. LOPERAMID [Concomitant]
     Indication: DIARRHOEA
     Dosage: 2 MG, PRN
     Route: 042
     Dates: start: 20130515, end: 20130523
  23. MORPHINE [Concomitant]
     Indication: DYSPNOEA
     Dosage: 2.5 MG, PRN
     Route: 042
     Dates: start: 20130518, end: 20130523
  24. AMLOZEK [Concomitant]
     Indication: HYPERTENSION
     Dosage: 5 MG, BID
     Route: 048
     Dates: start: 20130520
  25. KALIPOZ [Concomitant]
     Indication: HYPOKALAEMIA
     Dosage: 391 MG, BID
     Route: 048
     Dates: start: 20130513, end: 20130516
  26. SPIRONOL [Concomitant]
     Indication: HYPOKALAEMIA
     Dosage: UNK, QD
     Dates: start: 20130514, end: 20130515
  27. KALIUM CHLORATUM [Concomitant]
     Indication: HYPOKALAEMIA
     Dosage: 40 MEQ, QD
     Route: 042
  28. FUROSEMIDE [Concomitant]
     Indication: HYPERTENSION
     Dosage: 20 MG, PRN
     Route: 042
     Dates: start: 20130518, end: 20130523
  29. ALBUMIN [Concomitant]
     Indication: HYPOALBUMINAEMIA
     Dosage: 100 ML, QD
     Route: 042
     Dates: start: 20130518, end: 20130519
  30. KETONAL [Concomitant]
     Indication: PYREXIA
     Dosage: 100 MG
     Route: 042
     Dates: start: 20130518, end: 20130518

REACTIONS (4)
  - Pneumonia [Recovered/Resolved]
  - Thrombocytopenia [Unknown]
  - Anaemia [Unknown]
  - Atrial fibrillation [Recovered/Resolved]
